FAERS Safety Report 26119963 (Version 1)
Quarter: 2025Q4

REPORT INFORMATION
  Report Type: Spontaneous
  Country: GB (occurrence: GB)
  Receive Date: 20251204
  Receipt Date: 20251204
  Transmission Date: 20260118
  Serious: Yes (Other)
  Sender: MERCK SHARP & DOHME LLC
  Company Number: None

PATIENT
  Age: 30 Year
  Sex: Female
  Weight: 80 kg

DRUGS (11)
  1. SUGAMMADEX [Suspect]
     Active Substance: SUGAMMADEX
     Indication: Anaesthesia reversal
     Dosage: 2MG/KG
     Dates: start: 20251203, end: 20251203
  2. OXYCODONE [Concomitant]
     Active Substance: OXYCODONE
     Indication: Analgesic therapy
     Dosage: UNK
     Dates: start: 20251203, end: 20251203
  3. CLONIDINE [Concomitant]
     Active Substance: CLONIDINE
     Indication: Analgesic therapy
     Dosage: UNK
     Dates: start: 20251203, end: 20251203
  4. MAGNESIUM [Concomitant]
     Active Substance: MAGNESIUM
     Indication: Analgesic therapy
     Dosage: UNK
     Dates: start: 20251203, end: 20251203
  5. GENTAMICIN [Concomitant]
     Active Substance: GENTAMICIN
     Dosage: UNK
     Dates: start: 20251203, end: 20251203
  6. PROPOFOL [Concomitant]
     Active Substance: PROPOFOL
     Indication: Anaesthesia
     Dosage: UNK
     Dates: start: 20251203, end: 20251203
  7. ONDANSETRON [Concomitant]
     Active Substance: ONDANSETRON
     Indication: Antiemetic supportive care
     Dosage: UNK
     Dates: start: 20251203, end: 20251203
  8. ACETAMINOPHEN [Concomitant]
     Active Substance: ACETAMINOPHEN
     Indication: Analgesic therapy
     Dosage: UNK
     Dates: start: 20251203, end: 20251203
  9. ROCURONIUM [Concomitant]
     Active Substance: ROCURONIUM BROMIDE
     Indication: Anaesthesia
     Dosage: UNK
     Dates: start: 20251203, end: 20251203
  10. REMIFENTANIL [Concomitant]
     Active Substance: REMIFENTANIL
     Indication: Anaesthesia
     Dosage: UNK
     Dates: start: 20251203, end: 20251203
  11. CLINDAMYCIN [Concomitant]
     Active Substance: CLINDAMYCIN
     Dosage: UNK

REACTIONS (1)
  - Bradyarrhythmia [Recovered/Resolved]

NARRATIVE: CASE EVENT DATE: 20251203
